FAERS Safety Report 7327795-1 (Version None)
Quarter: 2011Q1

REPORT INFORMATION
  Report Type: 
  Country: None (occurrence: None)
  Receive Date: 20110303
  Receipt Date: 20110226
  Transmission Date: 20110831
  Serious: No
  Sender: FDA-Public Use
  Company Number: US-PFIZER INC-2011042063

PATIENT
  Sex: Female
  Weight: 52 kg

DRUGS (1)
  1. PREMARIN [Suspect]
     Indication: DYSURIA
     Dosage: 0.65 MG, DAILY
     Route: 067
     Dates: start: 20110220, end: 20110224

REACTIONS (3)
  - ERYTHEMA [None]
  - BURNING SENSATION [None]
  - SWELLING [None]
